FAERS Safety Report 25901510 (Version 1)
Quarter: 2025Q4

REPORT INFORMATION
  Report Type: Spontaneous
  Country: US (occurrence: None)
  Receive Date: 20251008
  Receipt Date: 20251008
  Transmission Date: 20260118
  Serious: Yes (Hospitalization)
  Sender: FDA-CTU
  Company Number: None

PATIENT
  Sex: Male

DRUGS (1)
  1. TERIFLUNOMIDE [Suspect]
     Active Substance: TERIFLUNOMIDE
     Indication: Multiple sclerosis
     Dosage: FREQUENCY : DAILY;?
     Route: 048
     Dates: start: 20250318

REACTIONS (7)
  - Vision blurred [None]
  - Hypoaesthesia [None]
  - Balance disorder [None]
  - Gait disturbance [None]
  - Hypoaesthesia [None]
  - Spinal pain [None]
  - Pain in extremity [None]
